FAERS Safety Report 17276851 (Version 1)
Quarter: 2020Q1

REPORT INFORMATION
  Report Type: Spontaneous
  Country: US (occurrence: US)
  Receive Date: 20200116
  Receipt Date: 20200116
  Transmission Date: 20200409
  Serious: No
  Sender: FDA-Public Use
  Company Number: US-PFIZER INC-2019560640

PATIENT
  Age: 60 Year
  Sex: Male

DRUGS (2)
  1. IRINOTECAN [Concomitant]
     Active Substance: IRINOTECAN
     Dosage: UNK
     Dates: start: 20191211
  2. OXALIPLATIN. [Suspect]
     Active Substance: OXALIPLATIN
     Indication: ADENOCARCINOMA PANCREAS
     Dosage: 165 MG, 2X/WEEK
     Route: 042
     Dates: start: 20191209

REACTIONS (3)
  - Dysarthria [Recovered/Resolved]
  - Product use in unapproved indication [Unknown]
  - Off label use [Unknown]
